FAERS Safety Report 16479633 (Version 2)
Quarter: 2020Q1

REPORT INFORMATION
  Report Type: Spontaneous
  Country: GB (occurrence: GB)
  Receive Date: 20190626
  Receipt Date: 20200227
  Transmission Date: 20200409
  Serious: Yes (Hospitalization, Other)
  Sender: FDA-Public Use
  Company Number: GB-MYLANLABS-2019M1057705

PATIENT
  Age: 28 Year
  Sex: Female
  Weight: 48 kg

DRUGS (9)
  1. PROPRANOLOL [Suspect]
     Active Substance: PROPRANOLOL HYDROCHLORIDE
     Indication: ANXIETY
     Dosage: AS NECESSARY
     Route: 048
     Dates: start: 20150416
  2. PROPRANOLOL [Suspect]
     Active Substance: PROPRANOLOL HYDROCHLORIDE
     Dosage: REDUCED TO 40MG DAILY WHEN PREGNANCY CONFIRMED
     Route: 048
     Dates: start: 20180816
  3. FLUOXETINE [Suspect]
     Active Substance: FLUOXETINE HYDROCHLORIDE
     Indication: ANXIETY
     Dosage: 60MG DAILY, REDUCED TO 20MG DAILY WHEN PREGNANCY CONFIRMED
     Route: 048
     Dates: start: 20150416
  4. FLUOXETINE [Suspect]
     Active Substance: FLUOXETINE HYDROCHLORIDE
     Dosage: REDUCED TO 20MG DAILY WHEN PREGNANCY CONFIRMED
     Route: 048
     Dates: start: 20180816
  5. FERROUS FUMARATE [Concomitant]
     Active Substance: FERROUS FUMARATE
     Dosage: 915 MILLIGRAM, QD
     Dates: start: 20190114
  6. FOLIC ACID. [Concomitant]
     Active Substance: FOLIC ACID
     Dosage: 5 MILLIGRAM, QD
  7. INFLUENZA VIRUS [Concomitant]
     Active Substance: INFLUENZA VIRUS VACCINE
     Dosage: UNK
     Dates: start: 20181213, end: 20181213
  8. COLECALCIFEROL [Concomitant]
     Active Substance: CHOLECALCIFEROL
     Dosage: 800 INTERNATIONAL UNIT, QD
  9. FERROUS FUMARATE [Concomitant]
     Active Substance: FERROUS FUMARATE
     Dosage: 630 MILLIGRAM, QD
     Dates: start: 20180816

REACTIONS (1)
  - Maternal exposure during pregnancy [Recovered/Resolved]
